FAERS Safety Report 24894500 (Version 2)
Quarter: 2025Q1

REPORT INFORMATION
  Report Type: Report from Study
  Country: PK (occurrence: PK)
  Receive Date: 20250128
  Receipt Date: 20250329
  Transmission Date: 20250408
  Serious: Yes (Other)
  Sender: ROCHE
  Company Number: PK-ROCHE-10000189622

PATIENT
  Age: 57 Year
  Sex: Female

DRUGS (2)
  1. AVASTIN [Suspect]
     Active Substance: BEVACIZUMAB
     Indication: Ovarian cancer
     Dosage: THERAPY WAS NOT ONGOING
     Route: 042
     Dates: start: 20240913
  2. AVASTIN [Suspect]
     Active Substance: BEVACIZUMAB
     Dosage: THERAPY WAS NOT ONGOING
     Route: 042

REACTIONS (2)
  - Ovarian operation [Unknown]
  - Weight increased [Unknown]
